FAERS Safety Report 25884139 (Version 2)
Quarter: 2025Q4

REPORT INFORMATION
  Report Type: Spontaneous
  Country: MX (occurrence: MX)
  Receive Date: 20251006
  Receipt Date: 20251013
  Transmission Date: 20260118
  Serious: Yes (Life-Threatening, Hospitalization, Other)
  Sender: PFIZER
  Company Number: MX-PFIZER INC-PV202500117623

PATIENT
  Age: 11 Year
  Sex: Male

DRUGS (9)
  1. METHOTREXATE SODIUM [Suspect]
     Active Substance: METHOTREXATE SODIUM
     Indication: Burkitt^s lymphoma stage IV
     Dosage: 5 G/M2/DAY (FIRST CYCLE)
  2. IFOSFAMIDE [Concomitant]
     Active Substance: IFOSFAMIDE
     Indication: Burkitt^s lymphoma stage IV
     Dosage: 800 MG/M2, DAILY (FIRST CYCLE)
  3. VINCRISTINE [Concomitant]
     Active Substance: VINCRISTINE
     Indication: Burkitt^s lymphoma stage IV
     Dosage: 1.5 MG/M2, DAILY (FIRST CYCLE)
  4. CYTARABINE [Concomitant]
     Active Substance: CYTARABINE
     Indication: Burkitt^s lymphoma stage IV
     Dosage: 150 MG/M2, DAILY (FIRST CYCLE)
  5. CYTARABINE [Concomitant]
     Active Substance: CYTARABINE
     Dosage: 150 MG/M2, DAILY (FIRST CYCLE)
  6. ETOPOSIDE [Concomitant]
     Active Substance: ETOPOSIDE
     Indication: Burkitt^s lymphoma stage IV
     Dosage: 100 MG/M2, DAILY (FIRST CYCLE)
  7. ETOPOSIDE [Concomitant]
     Active Substance: ETOPOSIDE
     Dosage: 100 MG/M2, DAILY (FIRST CYCLE)
  8. LEUCOVORIN [Concomitant]
     Active Substance: LEUCOVORIN\LEUCOVORIN CALCIUM
     Indication: Burkitt^s lymphoma stage IV
     Dosage: 15 MG/M2, 4X/DAY (FIRST CYCLE)
  9. MESNA [Concomitant]
     Active Substance: MESNA
     Indication: Burkitt^s lymphoma stage IV
     Dosage: UNK, CYCLIC (FIRST CYCLE)

REACTIONS (1)
  - Mucocutaneous toxicity [Recovered/Resolved]
